FAERS Safety Report 10359456 (Version 1)
Quarter: 2014Q3

REPORT INFORMATION
  Report Type: Spontaneous
  Country: US (occurrence: None)
  Receive Date: 20140801
  Receipt Date: 20140801
  Transmission Date: 20150326
  Serious: Yes (Life-Threatening, Hospitalization)
  Sender: FDA-Public Use
  Company Number: None

PATIENT
  Age: 25 Year
  Sex: Male
  Weight: 54.43 kg

DRUGS (1)
  1. BACLOFEN. [Suspect]
     Active Substance: BACLOFEN

REACTIONS (6)
  - Sleep disorder [None]
  - Condition aggravated [None]
  - No therapeutic response [None]
  - Incorrect route of drug administration [None]
  - Clonus [None]
  - Device connection issue [None]

NARRATIVE: CASE EVENT DATE: 20140124
